FAERS Safety Report 11386044 (Version 2)
Quarter: 2015Q3

REPORT INFORMATION
  Report Type: Spontaneous
  Country: JP (occurrence: JP)
  Receive Date: 20150817
  Receipt Date: 20150824
  Transmission Date: 20151125
  Serious: Yes (Other)
  Sender: FDA-Public Use
  Company Number: PHHY2015JP098594

PATIENT
  Age: 78 Year
  Sex: Female

DRUGS (18)
  1. IRBETAN [Concomitant]
     Active Substance: IRBESARTAN
     Indication: PRODUCT USED FOR UNKNOWN INDICATION
     Dosage: UNK
     Route: 065
  2. RIVASTACH [Suspect]
     Active Substance: RIVASTIGMINE
     Dosage: 4.6 MG/24 HOURS (PATCH 5 CM2, 9 MG RIVASTIGMINE BASE)
     Route: 062
     Dates: start: 2014, end: 2014
  3. RIVASTACH [Suspect]
     Active Substance: RIVASTIGMINE
     Dosage: 9.5 MG/24 HOURS (PATCH 10 CM2, 18 MG RIVASTIGMINE BASE)
     Route: 062
     Dates: start: 20141122
  4. EXELON [Suspect]
     Active Substance: RIVASTIGMINE TARTRATE
     Dosage: 6.9 MG/24 HOURS (PATCH 7.5 CM2, 13.5 MG RIVASTIGMINE BASE)
     Route: 062
     Dates: end: 201505
  5. RHEUMATREX [Concomitant]
     Active Substance: METHOTREXATE SODIUM
     Indication: PRODUCT USED FOR UNKNOWN INDICATION
     Dosage: UNK
     Route: 065
  6. LOXOPROFEN NA [Concomitant]
     Active Substance: LOXOPROFEN SODIUM
     Indication: PRODUCT USED FOR UNKNOWN INDICATION
     Dosage: UNK
     Route: 065
  7. EDIROL [Concomitant]
     Active Substance: ELDECALCITOL
     Indication: PRODUCT USED FOR UNKNOWN INDICATION
     Dosage: UNK
     Route: 065
  8. RIVASTACH [Suspect]
     Active Substance: RIVASTIGMINE
     Indication: DEMENTIA ALZHEIMER^S TYPE
     Dosage: 1.9 MG/24 HOURS (PATCH 2.5 CM2, 4.5 MG RIVASTIGMINE BASE)
     Route: 062
     Dates: start: 20140920, end: 2014
  9. RIVASTACH [Suspect]
     Active Substance: RIVASTIGMINE
     Dosage: 6.9 MG/24 HOURS (PATCH 7.5 CM2, 13.5 MG RIVASTIGMINE BASE)
     Route: 062
     Dates: start: 2014, end: 20141121
  10. BAYASPIRIN [Concomitant]
     Active Substance: ASPIRIN
     Indication: PRODUCT USED FOR UNKNOWN INDICATION
     Dosage: UNK
     Route: 065
  11. NEOXY [Concomitant]
     Indication: PRODUCT USED FOR UNKNOWN INDICATION
     Dosage: UNK
     Route: 065
  12. FERROMIA [Concomitant]
     Active Substance: FERROUS CITRATE
     Indication: PRODUCT USED FOR UNKNOWN INDICATION
     Dosage: UNK
     Route: 065
  13. RIVASTACH [Suspect]
     Active Substance: RIVASTIGMINE
     Dosage: 6.9 MG (13.5 MG RIVASTIGMINE BASE), QD
     Route: 062
     Dates: start: 201505
  14. PREDONINE [Concomitant]
     Active Substance: PREDNISOLONE\PREDNISOLONE ACETATE\PREDNISOLONE SODIUM SUCCINATE
     Indication: PRODUCT USED FOR UNKNOWN INDICATION
     Dosage: UNK
     Route: 065
  15. LANSOPRAZOLE. [Concomitant]
     Active Substance: LANSOPRAZOLE
     Indication: PRODUCT USED FOR UNKNOWN INDICATION
     Dosage: UNK
     Route: 065
  16. FOLIAMIN [Concomitant]
     Active Substance: FOLIC ACID
     Indication: PRODUCT USED FOR UNKNOWN INDICATION
     Dosage: UNK
     Route: 065
  17. REBAMIPIDE [Concomitant]
     Active Substance: REBAMIPIDE
     Indication: PRODUCT USED FOR UNKNOWN INDICATION
     Dosage: UNK
     Route: 065
  18. EXELON [Suspect]
     Active Substance: RIVASTIGMINE TARTRATE
     Indication: DEMENTIA ALZHEIMER^S TYPE
     Dosage: 9.5 MG/24 HOURS (PATCH 10 CM2, 18 MG RIVASTIGMINE BASE)
     Route: 062

REACTIONS (2)
  - Cerebral infarction [Unknown]
  - Vision blurred [Recovering/Resolving]
